FAERS Safety Report 8767068 (Version 2)
Quarter: 2012Q4

REPORT INFORMATION
  Report Type: 
  Country: DE (occurrence: DE)
  Receive Date: 20120911
  Receipt Date: 20120925
  Transmission Date: 20130627
  Serious: Yes (Other)
  Sender: FDA-Public Use
  Company Number: DE-PFIZER INC-2012210778

PATIENT
  Sex: Female
  Weight: 132 kg

DRUGS (6)
  1. RAMIPRIL [Suspect]
     Indication: HYPERTENSION
     Dosage: 2.5 mg, single
     Route: 048
  2. AMLODIPINE BESILATE [Suspect]
     Indication: HYPERTENSION
     Dosage: 5 mg, UNK
     Route: 048
     Dates: start: 20120111, end: 20120111
  3. RASILAMLO [Suspect]
     Indication: HYPERTENSION
     Dosage: 150/5mg
     Route: 048
  4. EXFORGE HCT [Suspect]
     Indication: HYPERTENSION
     Dosage: 10/160/25mg, UNK
     Route: 048
  5. MICARDIS [Suspect]
     Indication: HYPERTENSION
     Dosage: 40 mg, single
     Route: 048
  6. THYRONAJOD [Concomitant]
     Indication: GOITRE
     Dosage: 50 mg, UNK
     Route: 048

REACTIONS (3)
  - Lip swelling [Recovered/Resolved]
  - Paraesthesia oral [Recovered/Resolved]
  - Palatal oedema [Recovered/Resolved]
